FAERS Safety Report 13649487 (Version 1)
Quarter: 2017Q2

REPORT INFORMATION
  Report Type: Report from Study
  Country: None (occurrence: US)
  Receive Date: 20170614
  Receipt Date: 20170614
  Transmission Date: 20170830
  Serious: Yes (Other)
  Sender: FDA-Public Use
  Company Number: US-ABBVIE-17K-163-1949992-00

PATIENT
  Sex: Female

DRUGS (1)
  1. HUMIRA [Suspect]
     Active Substance: ADALIMUMAB
     Indication: RHEUMATOID ARTHRITIS
     Route: 058

REACTIONS (13)
  - Fibromyalgia [Unknown]
  - Atrial fibrillation [Unknown]
  - Pain in extremity [Unknown]
  - Sciatica [Unknown]
  - Venous occlusion [Unknown]
  - Exostosis [Unknown]
  - Inflammation [Unknown]
  - Hypotension [Unknown]
  - Limb injury [Unknown]
  - Intervertebral disc space narrowing [Unknown]
  - Bronchitis [Unknown]
  - Fatigue [Unknown]
  - Arthralgia [Unknown]
